FAERS Safety Report 6261715-6 (Version None)
Quarter: 2009Q3

REPORT INFORMATION
  Report Type: 
  Country: None (occurrence: None)
  Receive Date: 20090709
  Receipt Date: 20090701
  Transmission Date: 20100115
  Serious: Yes (Other)
  Sender: FDA-Public Use
  Company Number: US-ELI_LILLY_AND_COMPANY-US200907000659

PATIENT
  Age: 57 Year
  Sex: Female

DRUGS (4)
  1. EVISTA [Suspect]
     Indication: OSTEOPENIA
     Dosage: 60 MG, UNKNOWN
     Route: 065
     Dates: start: 20060828
  2. EFFEXOR [Concomitant]
     Dosage: UNK, UNKNOWN
     Route: 065
  3. VAGIFEM [Concomitant]
     Dosage: UNK, UNKNOWN
     Route: 065
  4. VOLTAREN [Concomitant]
     Dosage: UNK, UNKNOWN
     Route: 065

REACTIONS (1)
  - BREAST CANCER [None]
